FAERS Safety Report 10198564 (Version 1)
Quarter: 2014Q2

REPORT INFORMATION
  Report Type: Spontaneous
  Country: US (occurrence: US)
  Receive Date: 20140527
  Receipt Date: 20140527
  Transmission Date: 20141212
  Serious: No
  Sender: FDA-Public Use
  Company Number: US-NOVEN-13US007941

PATIENT
  Age: 8 Year
  Sex: Male
  Weight: 24.94 kg

DRUGS (1)
  1. DAYTRANA [Suspect]
     Indication: ATTENTION DEFICIT/HYPERACTIVITY DISORDER
     Dosage: 10 MG FOR 9HR, QD
     Route: 062

REACTIONS (4)
  - Impulsive behaviour [Not Recovered/Not Resolved]
  - Disturbance in attention [Not Recovered/Not Resolved]
  - Logorrhoea [Not Recovered/Not Resolved]
  - Initial insomnia [Not Recovered/Not Resolved]
